FAERS Safety Report 8433268-5 (Version None)
Quarter: 2012Q2

REPORT INFORMATION
  Report Type: 
  Country: None (occurrence: None)
  Receive Date: 20120613
  Receipt Date: 20120608
  Transmission Date: 20120825
  Serious: No
  Sender: FDA-Public Use
  Company Number: US-PFIZER INC-2012124095

PATIENT
  Sex: Female
  Weight: 82 kg

DRUGS (12)
  1. LYRICA [Suspect]
     Dosage: 100 MG, 2X/DAY
     Route: 048
  2. COUMADIN [Concomitant]
     Dosage: UNK
  3. FENOFIBRATE [Suspect]
     Indication: LIPIDS INCREASED
     Dosage: 160 MG, 1X/DAY
     Route: 048
     Dates: start: 20120517
  4. NEXIUM [Concomitant]
     Indication: GASTROOESOPHAGEAL REFLUX DISEASE
     Dosage: 40 MG, ONCE DAILY
  5. NAPROSYN [Concomitant]
     Indication: OSTEOARTHRITIS
     Dosage: 500 MG, ONCE DAILY
  6. LYRICA [Suspect]
     Dosage: 100 MG, 1X/DAY
     Route: 048
     Dates: end: 20120101
  7. ZOCOR [Suspect]
     Indication: LIPIDS INCREASED
     Dosage: 40 MG, 1X/DAY
     Route: 048
  8. MECLIZINE [Concomitant]
     Dosage: UNK
  9. VITAMIN D [Concomitant]
     Dosage: UNK
  10. LYRICA [Suspect]
     Indication: FIBROMYALGIA
     Dosage: 100 MG, 1X/DAY
     Route: 048
  11. LISINOPRIL [Concomitant]
     Indication: HYPERTENSION
     Dosage: 10 MG, DAILY
  12. TRAMADOL [Concomitant]
     Dosage: UNK

REACTIONS (4)
  - PAIN [None]
  - DRUG TOLERANCE [None]
  - DRUG INEFFECTIVE [None]
  - BLOOD TRIGLYCERIDES INCREASED [None]
